FAERS Safety Report 25500892 (Version 1)
Quarter: 2025Q3

REPORT INFORMATION
  Report Type: Spontaneous
  Country: EU (occurrence: EU)
  Receive Date: 20250701
  Receipt Date: 20250701
  Transmission Date: 20251020
  Serious: Yes (Other)
  Sender: MYLAN
  Company Number: None

PATIENT
  Age: 21 Year
  Sex: Male

DRUGS (8)
  1. ALPRAZOLAM [Suspect]
     Active Substance: ALPRAZOLAM
     Indication: Product used for unknown indication
     Dosage: 12 MILLIGRAM, QD
  2. ALPRAZOLAM [Suspect]
     Active Substance: ALPRAZOLAM
     Dosage: 12 MILLIGRAM, QD
  3. ALPRAZOLAM [Suspect]
     Active Substance: ALPRAZOLAM
     Dosage: 12 MILLIGRAM, QD
     Route: 065
  4. ALPRAZOLAM [Suspect]
     Active Substance: ALPRAZOLAM
     Dosage: 12 MILLIGRAM, QD
     Route: 065
  5. ALPRAZOLAM [Suspect]
     Active Substance: ALPRAZOLAM
     Dosage: 12 MILLIGRAM, QD
  6. ALPRAZOLAM [Suspect]
     Active Substance: ALPRAZOLAM
     Dosage: 12 MILLIGRAM, QD
  7. ALPRAZOLAM [Suspect]
     Active Substance: ALPRAZOLAM
     Dosage: 12 MILLIGRAM, QD
     Route: 065
  8. ALPRAZOLAM [Suspect]
     Active Substance: ALPRAZOLAM
     Dosage: 12 MILLIGRAM, QD
     Route: 065

REACTIONS (3)
  - Drug dependence [Recovering/Resolving]
  - Intentional product use issue [Recovering/Resolving]
  - Pharmaceutical nomadism [Recovering/Resolving]
